FAERS Safety Report 25841110 (Version 3)
Quarter: 2025Q4

REPORT INFORMATION
  Report Type: Spontaneous
  Country: IL (occurrence: IL)
  Receive Date: 20250924
  Receipt Date: 20251005
  Transmission Date: 20260117
  Serious: Yes (Hospitalization)
  Sender: BAXTER
  Company Number: IL-BAXTER-2025BAX021499

PATIENT
  Age: 67 Year
  Sex: Female

DRUGS (7)
  1. CERNEVIT [Suspect]
     Active Substance: VITAMINS
     Dosage: UNKNOWN DOSE OF CERNEVIT 5 ML ADMINISTERED OVER 12 HOURS
     Route: 065
     Dates: start: 20250710
  2. CERNEVIT [Suspect]
     Active Substance: VITAMINS
     Dosage: UNKNOWN DOSE OF CERNEVIT MULTIVITAMIN 12- 5ML ADMINISTERED OVER 12 HOURS
     Route: 065
     Dates: start: 202509
  3. IRON\MINERALS\POTASSIUM IOD\SODIUM FLUORIDE\SODIUM MOLYBDATE\SODIUM SE [Suspect]
     Active Substance: IRON\MINERALS\POTASSIUM IOD\SODIUM FLUORIDE\SODIUM MOLYBDATE\SODIUM SELENITE\ZINC
     Dosage: UNKNOWN DOSE OF NUTRYELT 10 ML ADMINISTERED OVER 12 HOURS
     Route: 065
     Dates: start: 20250710
  4. IRON\MINERALS\POTASSIUM IOD\SODIUM FLUORIDE\SODIUM MOLYBDATE\SODIUM SE [Suspect]
     Active Substance: IRON\MINERALS\POTASSIUM IOD\SODIUM FLUORIDE\SODIUM MOLYBDATE\SODIUM SELENITE\ZINC
     Dosage: UNKNOWN DOSE OF NUTRYELT AMPOULE 10 ML ADMINISTERED OVER 12 HOURS
     Route: 065
     Dates: start: 202509
  5. OLIMEL E [Suspect]
     Active Substance: AMINO ACIDS\DEXTROSE\ELECTROLYTES NOS\SOYBEAN OIL
     Dosage: UNKNOWN DOSE OF OLIMEL N9E (1500 ML) ADMINISTERED OVER 12 HOURS
     Route: 065
     Dates: start: 20250710
  6. OLIMEL E [Suspect]
     Active Substance: AMINO ACIDS\DEXTROSE\ELECTROLYTES NOS\SOYBEAN OIL
     Dosage: UNKNOWN DOSE OF OLIMEL N9E 1500ML ADMINISTERED OVER 12 HOURS
     Route: 065
     Dates: start: 202509
  7. Taurosept [Concomitant]
     Indication: Infection prophylaxis
     Dosage: SYRINGE
     Route: 065
     Dates: start: 20250903

REACTIONS (2)
  - Infection [Recovered/Resolved]
  - Pruritus [Not Recovered/Not Resolved]
